FAERS Safety Report 6209134-2 (Version None)
Quarter: 2009Q2

REPORT INFORMATION
  Report Type: 
  Country: None (occurrence: None)
  Receive Date: 20090522
  Receipt Date: 20090220
  Transmission Date: 20091009
  Serious: No
  Sender: FDA-Public Use
  Company Number: 8041156

PATIENT
  Age: 29 Year
  Sex: Male
  Weight: 47.6 kg

DRUGS (5)
  1. CIMZIA [Suspect]
     Indication: CROHN'S DISEASE
     Dosage: 400 MG 3/W SC
     Route: 058
     Dates: start: 20090109, end: 20090217
  2. ZANTAC [Concomitant]
  3. SCOPOLAMINE [Concomitant]
  4. KLONOPIN [Concomitant]
  5. RHINOCORT [Concomitant]

REACTIONS (9)
  - ABDOMINAL DISTENSION [None]
  - ANOREXIA [None]
  - DIZZINESS [None]
  - FATIGUE [None]
  - FEELING ABNORMAL [None]
  - HYPERHIDROSIS [None]
  - NAUSEA [None]
  - PALPITATIONS [None]
  - PARESIS [None]
